FAERS Safety Report 7075280-7 (Version None)
Quarter: 2010Q4

REPORT INFORMATION
  Report Type: 
  Country: None (occurrence: None)
  Receive Date: 20101030
  Receipt Date: 20100819
  Transmission Date: 20110411
  Serious: No
  Sender: FDA-Public Use
  Company Number: US-WYE-H16278610

PATIENT
  Age: 77 Year
  Sex: Male
  Weight: 72.64 kg

DRUGS (7)
  1. ALAVERT [Suspect]
     Indication: HYPERSENSITIVITY
     Dosage: ONE TABLET AS NEEDED
     Route: 048
     Dates: start: 20100629
  2. ALAVERT [Suspect]
     Indication: EYE PRURITUS
  3. ALAVERT [Suspect]
     Indication: LACRIMATION INCREASED
  4. ALAVERT [Suspect]
     Indication: NASAL DISCOMFORT
  5. ALAVERT [Suspect]
     Indication: THROAT IRRITATION
  6. ALAVERT [Suspect]
     Indication: RHINORRHOEA
  7. ALAVERT [Suspect]
     Indication: SNEEZING

REACTIONS (2)
  - DRUG EFFECT DECREASED [None]
  - OVERDOSE [None]
